FAERS Safety Report 9374930 (Version 3)
Quarter: 2013Q3

REPORT INFORMATION
  Report Type: Spontaneous
  Country: US (occurrence: US)
  Receive Date: 20130628
  Receipt Date: 20130828
  Transmission Date: 20140515
  Serious: Yes (Other)
  Sender: FDA-Public Use
  Company Number: US-BAUSCH-BL-2013-003904

PATIENT
  Age: 36 Year
  Sex: Male

DRUGS (4)
  1. LOTEMAX (LOTEPREDNOL ETABONATE OPHTHALMIC SUSPENSION 0.5%) [Suspect]
     Indication: POSTOPERATIVE CARE
     Dosage: 1 DROP IN LEFT EYE; FOUR TIMES DAILY; OPHTHALMIC
     Route: 047
     Dates: start: 20130404, end: 20130409
  2. LOTEMAX (LOTEPREDNOL ETABONATE OPHTHALMIC GEL 0.5%) [Suspect]
     Indication: POSTOPERATIVE CARE
     Dosage: 1 DROP; FOUR TIMES DAILY; LEFT EYE
     Route: 047
     Dates: start: 20130403, end: 20130403
  3. NEVANAC [Suspect]
     Indication: POSTOPERATIVE CARE
     Dosage: 1 DROP; THREE TIMES DAILY; LEFT EYE
     Route: 047
  4. VIGAMOX [Suspect]
     Indication: POSTOPERATIVE CARE
     Dosage: 1 DROP; THREE TIMES DAILY; LEFT EYE
     Route: 047

REACTIONS (1)
  - Keratopathy [Not Recovered/Not Resolved]
